FAERS Safety Report 20700505 (Version 1)
Quarter: 2022Q2

REPORT INFORMATION
  Report Type: Spontaneous
  Country: US (occurrence: US)
  Receive Date: 20220412
  Receipt Date: 20220412
  Transmission Date: 20220721
  Serious: No
  Sender: FDA-Public Use
  Company Number: US-PFIZER INC-202100971409

PATIENT
  Age: 65 Year
  Sex: Male

DRUGS (1)
  1. EUCRISA [Suspect]
     Active Substance: CRISABOROLE
     Indication: Rash
     Dosage: APPLY THIN FILM TO AFFECTED AREA BID PRN
     Route: 061

REACTIONS (3)
  - Off label use [Unknown]
  - Off label use [Unknown]
  - Condition aggravated [Unknown]
